FAERS Safety Report 6170431-0 (Version None)
Quarter: 2009Q2

REPORT INFORMATION
  Report Type: 
  Country: None (occurrence: None)
  Receive Date: 20090428
  Receipt Date: 20090421
  Transmission Date: 20091009
  Serious: Yes (Hospitalization)
  Sender: FDA-Public Use
  Company Number: DE-AVENTIS-200911067DE

PATIENT
  Age: 47 Year
  Sex: Female
  Weight: 58.5 kg

DRUGS (4)
  1. DOCETAXEL [Suspect]
     Route: 042
     Dates: start: 20081117, end: 20081229
  2. BERLTHYROX [Concomitant]
     Indication: HYPOTHYROIDISM
     Route: 048
     Dates: start: 20061101
  3. NOVORAPID [Concomitant]
     Indication: DIABETES MELLITUS
     Dosage: DOSE: VAGUE
     Route: 058
     Dates: start: 20060601
  4. LEVEMIR [Concomitant]
     Indication: DIABETES MELLITUS
     Dosage: DOSE: VAGUE
     Route: 058
     Dates: start: 20060601

REACTIONS (1)
  - MUSCLE SPASTICITY [None]
